FAERS Safety Report 13819187 (Version 1)
Quarter: 2017Q3

REPORT INFORMATION
  Report Type: Spontaneous
  Country: US (occurrence: US)
  Receive Date: 20170731
  Receipt Date: 20170731
  Transmission Date: 20171127
  Serious: No
  Sender: FDA-Public Use
  Company Number: None

PATIENT
  Sex: Female
  Weight: 60.75 kg

DRUGS (2)
  1. HYDROQUINONE. [Suspect]
     Active Substance: HYDROQUINONE
     Indication: SKIN DISORDER
     Dosage: ?          QUANTITY:28.35 OINTMENT;?
     Dates: start: 20070109, end: 20071231
  2. IRON [Concomitant]
     Active Substance: IRON

REACTIONS (2)
  - Expired product administered [None]
  - Drug dispensing error [None]

NARRATIVE: CASE EVENT DATE: 20070109
